FAERS Safety Report 16734750 (Version 3)
Quarter: 2019Q3

REPORT INFORMATION
  Report Type: Spontaneous
  Country: RO (occurrence: RO)
  Receive Date: 20190823
  Receipt Date: 20190921
  Transmission Date: 20191005
  Serious: Yes (Life-Threatening, Hospitalization, Other)
  Sender: FDA-Public Use
  Company Number: RO-AUROBINDO-AUR-APL-2019-056094

PATIENT
  Age: 48 Year
  Sex: Female

DRUGS (1)
  1. METOPROLOL. [Suspect]
     Active Substance: METOPROLOL
     Indication: HYPERTENSION
     Dosage: UNK
     Route: 065

REACTIONS (10)
  - Nodal rhythm [Unknown]
  - Bradycardia [Unknown]
  - Poisoning [Unknown]
  - Loss of consciousness [Recovering/Resolving]
  - Hypotension [Unknown]
  - Brugada syndrome [Unknown]
  - Toxicity to various agents [Unknown]
  - Seizure [Unknown]
  - Oxygen saturation decreased [Unknown]
  - Electrocardiogram abnormal [Unknown]
